FAERS Safety Report 5813777-5 (Version None)
Quarter: 2008Q3

REPORT INFORMATION
  Report Type: 
  Country: None (occurrence: None)
  Receive Date: 20080717
  Receipt Date: 20080710
  Transmission Date: 20090109
  Serious: Yes (Other)
  Sender: FDA-Public Use
  Company Number: PHEH2008US01432

PATIENT
  Sex: Female
  Weight: 45.351 kg

DRUGS (1)
  1. FORADIL [Suspect]
     Indication: ASTHMA
     Dosage: 12 UG, BID

REACTIONS (2)
  - ASTHMA [None]
  - DEVICE MALFUNCTION [None]
